FAERS Safety Report 10272888 (Version 3)
Quarter: 2014Q3

REPORT INFORMATION
  Report Type: Report from Study
  Country: US (occurrence: US)
  Receive Date: 20140702
  Receipt Date: 20140714
  Transmission Date: 20150326
  Serious: Yes (Hospitalization, Other)
  Sender: FDA-Public Use
  Company Number: US-BAYER-2014-095700

PATIENT
  Age: 56 Year
  Sex: Female
  Weight: 61 kg

DRUGS (8)
  1. FOLIC ACID. [Concomitant]
     Active Substance: FOLIC ACID
     Indication: NUTRITIONAL SUPPLEMENTATION
     Dosage: UNK
     Route: 048
     Dates: start: 2011
  2. DACARBAZINE. [Suspect]
     Active Substance: DACARBAZINE
     Indication: LEIOMYOSARCOMA
     Dosage: 1000MG/M2 (1 IN 21 D)
     Route: 042
     Dates: start: 20121213, end: 201305
  3. DACARBAZINE. [Suspect]
     Active Substance: DACARBAZINE
     Indication: LEIOMYOSARCOMA
     Dosage: 600MG/M2
     Dates: start: 20130509
  4. DACARBAZINE. [Suspect]
     Active Substance: DACARBAZINE
     Indication: LEIOMYOSARCOMA
     Dosage: 800MG/M2
     Dates: end: 20130530
  5. MULTIVITAMIN [Concomitant]
     Active Substance: VITAMINS
     Indication: NUTRITIONAL SUPPLEMENTATION
     Dosage: 1 DF, ( 1 IN 1D)
     Route: 048
     Dates: start: 2011
  6. METHIMAZOLE. [Concomitant]
     Active Substance: METHIMAZOLE
     Indication: BASEDOW^S DISEASE
     Dosage: UNK
     Route: 048
     Dates: start: 2008
  7. OMEPRAZOLE. [Concomitant]
     Active Substance: OMEPRAZOLE
     Indication: GASTROOESOPHAGEAL REFLUX DISEASE
     Route: 048
  8. SENOKOT [Concomitant]
     Active Substance: SENNOSIDES
     Indication: CONSTIPATION
     Route: 048

REACTIONS (5)
  - Anaemia [Recovered/Resolved]
  - Gastrointestinal haemorrhage [Recovered/Resolved]
  - Gastrointestinal haemorrhage [Recovered/Resolved]
  - Thrombocytopenia [Recovered/Resolved]
  - Diverticulum [Recovered/Resolved]

NARRATIVE: CASE EVENT DATE: 20130302
